FAERS Safety Report 6274739-X (Version None)
Quarter: 2009Q3

REPORT INFORMATION
  Report Type: 
  Country: None (occurrence: None)
  Receive Date: 20090717
  Receipt Date: 20090709
  Transmission Date: 20100115
  Serious: Yes (Life-Threatening, Hospitalization)
  Sender: FDA-Public Use
  Company Number: WAES 0907FRA00023

PATIENT
  Age: 44 Year
  Sex: Female

DRUGS (22)
  1. ZOLINZA [Suspect]
     Indication: NON-SMALL CELL LUNG CANCER
     Dosage: 400 MG DAILY PO
     Route: 048
     Dates: start: 20090624, end: 20090703
  2. GEMCITABINE [Suspect]
     Indication: NON-SMALL CELL LUNG CANCER
     Dosage: 1250 M G/M2 DAILY IV
     Route: 042
     Dates: start: 20090626, end: 20090626
  3. GEMCITABINE [Suspect]
     Indication: NON-SMALL CELL LUNG CANCER
     Dosage: 1250 M G/M2 DAILY IV
     Route: 042
     Dates: start: 20090703, end: 20090703
  4. CISPLATIN [Suspect]
     Indication: NON-SMALL CELL LUNG CANCER
     Dosage: 75 MG/M2 DAILY IV
     Route: 042
     Dates: start: 20090626, end: 20090626
  5. EMEND [Concomitant]
  6. ACETAMINOPHEN [Concomitant]
  7. ACETAMINOPHEN AND CODEINE PHOSPHATE [Concomitant]
  8. ACETAMINOPHEN- PROPOXYPHENE HCL TAB [Concomitant]
  9. ENOXAPARIN SODIUM [Concomitant]
  10. ESOMEPRAZOLE MAGNESIUM [Concomitant]
  11. FENTANYL CITRATE [Concomitant]
  12. FONDAPARINUX SODIUM [Concomitant]
  13. KETOPROFEN [Concomitant]
  14. METHYLPREDNISOLONE SODIUM SUCCINATE [Concomitant]
  15. METOCLOPRAMIDE HYDROCHLORIDE [Concomitant]
  16. NEFOPAM HCL [Concomitant]
  17. OMEPRAZOLE [Concomitant]
  18. ONDANSETRON HYDROCHLORIDE [Concomitant]
  19. POLYETHYLENE GLYCOL 4000 [Concomitant]
  20. PREDNISOLONE [Concomitant]
  21. PREGABALIN [Concomitant]
  22. TINZAPARIN SODIUM [Concomitant]

REACTIONS (1)
  - CEREBROVASCULAR ACCIDENT [None]
